FAERS Safety Report 8162288-3 (Version None)
Quarter: 2012Q1

REPORT INFORMATION
  Report Type: 
  Country: None (occurrence: None)
  Receive Date: 20120103
  Receipt Date: 20110930
  Transmission Date: 20120608
  Serious: No
  Sender: FDA-Public Use
  Company Number: AE-2011-001948

PATIENT
  Sex: Female

DRUGS (6)
  1. RIBAVIRIN [Concomitant]
  2. PEGASYS [Concomitant]
  3. NERVE PILLS [Concomitant]
  4. SLEEPING PILL (SCOPOLAMINE AMINOXIDE HYDROBROMIDE) [Concomitant]
  5. INCIVEK [Suspect]
     Dosage: 2250 MG (750 MG, 3 IN 1 D), ORAL
     Route: 048
     Dates: start: 20110812
  6. DIOVAN [Concomitant]

REACTIONS (3)
  - ANORECTAL DISCOMFORT [None]
  - INAPPROPRIATE SCHEDULE OF DRUG ADMINISTRATION [None]
  - DIARRHOEA [None]
